FAERS Safety Report 7214122-3 (Version None)
Quarter: 2010Q4

REPORT INFORMATION
  Report Type: 
  Country: None (occurrence: None)
  Receive Date: 20101126
  Receipt Date: 20091027
  Transmission Date: 20110411
  Serious: Yes (Other)
  Sender: FDA-Public Use
  Company Number: WAES 0907USA05804

PATIENT
  Age: 63 Year
  Sex: Female

DRUGS (5)
  1. FOSAMAX [Suspect]
     Indication: OSTEOPOROSIS
     Dosage: 70 MG/WKY/PO ; 70 MG/WKY/PO ;  70 MG/WKY/PO
     Route: 048
     Dates: start: 20060516, end: 20060801
  2. FOSAMAX [Suspect]
     Indication: OSTEOPOROSIS
     Dosage: 70 MG/WKY/PO ; 70 MG/WKY/PO ;  70 MG/WKY/PO
     Route: 048
     Dates: start: 20040101, end: 20080814
  3. FOSAMAX [Suspect]
     Indication: OSTEOPOROSIS
     Dosage: 70 MG/WKY/PO ; 70 MG/WKY/PO ;  70 MG/WKY/PO
     Route: 048
     Dates: end: 20080814
  4. ACTONEL [Suspect]
     Indication: OSTEOPOROSIS
     Dosage: 35 MG/WKY/PO
     Route: 048
     Dates: start: 20030403, end: 20060410
  5. ESTRADIOL [Concomitant]

REACTIONS (17)
  - ANAEMIA [None]
  - ANXIETY [None]
  - BREAST CYST [None]
  - DYSPEPSIA [None]
  - GASTROOESOPHAGEAL REFLUX DISEASE [None]
  - GINGIVAL DISORDER [None]
  - GINGIVAL INFECTION [None]
  - HYPERTENSION [None]
  - IMPAIRED HEALING [None]
  - INCORRECT DRUG ADMINISTRATION DURATION [None]
  - MOUTH HAEMORRHAGE [None]
  - ORAL DISORDER [None]
  - ORAL INFECTION [None]
  - ORAL TORUS [None]
  - OSTEONECROSIS [None]
  - STOMATITIS [None]
  - STRESS [None]
